FAERS Safety Report 5514676-9 (Version None)
Quarter: 2007Q4

REPORT INFORMATION
  Report Type: 
  Country: None (occurrence: None)
  Receive Date: 20071113
  Receipt Date: 20071101
  Transmission Date: 20080405
  Serious: Yes (Other)
  Sender: FDA-Public Use
  Company Number: CA-PFIZER INC-2007090548

PATIENT
  Age: 59 Year
  Sex: Female

DRUGS (8)
  1. CHAMPIX [Suspect]
     Indication: SMOKING CESSATION THERAPY
     Route: 048
  2. SPIRIVA [Concomitant]
     Route: 055
  3. ALBUTEROL [Concomitant]
     Route: 055
  4. ADVAIR DISKUS 100/50 [Concomitant]
     Route: 055
  5. TIAZAC [Concomitant]
     Route: 048
  6. LIPITOR [Concomitant]
     Route: 048
  7. ANTIDEPRESSANTS [Concomitant]
  8. NITROGLYCERIN [Concomitant]

REACTIONS (1)
  - COUGH [None]
